FAERS Safety Report 8190888-3 (Version None)
Quarter: 2012Q1

REPORT INFORMATION
  Report Type: 
  Country: None (occurrence: None)
  Receive Date: 20120307
  Receipt Date: 20120228
  Transmission Date: 20120608
  Serious: Yes (Other)
  Sender: FDA-Public Use
  Company Number: US-BAYER-2012-011813

PATIENT
  Age: 32 Year
  Sex: Female
  Weight: 142.8 kg

DRUGS (8)
  1. FLEXERIL [Concomitant]
     Dosage: 10 MG, TID
     Route: 048
     Dates: start: 20091119
  2. XANAX [Concomitant]
     Indication: ANXIETY
     Dosage: UNK UNK, PRN
     Route: 048
     Dates: start: 20091119
  3. TOPAMAX [Concomitant]
     Dosage: 125 MG, BID
     Route: 048
     Dates: start: 20091119
  4. NAPROXEN SODIUM AND PSEUDOEPHEDRINE HYDROCHLORIDE [Concomitant]
     Dosage: 550 MG, PRN
     Route: 048
     Dates: start: 20091119
  5. ASTELIN [Concomitant]
     Dosage: UNK
     Route: 055
     Dates: start: 20091119
  6. RELAFEN [Concomitant]
     Dosage: 750 MG, BID
     Route: 048
     Dates: start: 20091119
  7. YAZ [Suspect]
     Dosage: UNK
     Dates: start: 20091119
  8. DROSPIRENONE AND ETHINYL ESTRADIOL [Suspect]

REACTIONS (2)
  - PAIN [None]
  - DEEP VEIN THROMBOSIS [None]
